FAERS Safety Report 16228816 (Version 1)
Quarter: 2019Q2

REPORT INFORMATION
  Report Type: Spontaneous
  Country: US (occurrence: US)
  Receive Date: 20190319
  Receipt Date: 20190319
  Transmission Date: 20190711
  Serious: No
  Sender: FDA-Public Use
  Company Number: None

PATIENT
  Age: 52 Year
  Sex: Female

DRUGS (4)
  1. ORENCIA [Suspect]
     Active Substance: ABATACEPT
     Indication: RHEUMATOID ARTHRITIS
     Dates: start: 20030101
  2. METHOTREXATE. [Concomitant]
     Active Substance: METHOTREXATE
  3. CELECOXIB. [Concomitant]
     Active Substance: CELECOXIB
  4. TOPIRAMATE. [Concomitant]
     Active Substance: TOPIRAMATE

REACTIONS (1)
  - Drug ineffective [None]

NARRATIVE: CASE EVENT DATE: 20190307
